FAERS Safety Report 15124220 (Version 1)
Quarter: 2018Q3

REPORT INFORMATION
  Report Type: Spontaneous
  Country: US (occurrence: US)
  Receive Date: 20180710
  Receipt Date: 20180710
  Transmission Date: 20181010
  Serious: Yes (Hospitalization, Other)
  Sender: FDA-Public Use
  Company Number: US-ASTELLAS-2018US030014

PATIENT
  Age: 37 Year
  Sex: Male
  Weight: 62 kg

DRUGS (2)
  1. QUETIAPINE. [Suspect]
     Active Substance: QUETIAPINE
     Indication: PRODUCT USED FOR UNKNOWN INDICATION
     Dosage: UNK UNK, UNKNOWN FREQ.
     Route: 065
  2. MICAFUNGIN [Suspect]
     Active Substance: MICAFUNGIN
     Indication: SYSTEMIC CANDIDA
     Route: 042

REACTIONS (17)
  - Chronic hepatitis C [Unknown]
  - Systemic candida [Recovered/Resolved]
  - Fungal endocarditis [Recovered/Resolved]
  - Ascites [Unknown]
  - Hepatic cirrhosis [Unknown]
  - Splenomegaly [Unknown]
  - Incarcerated umbilical hernia [Unknown]
  - Cirrhosis alcoholic [Unknown]
  - Portal hypertension [Unknown]
  - Mallory-Weiss syndrome [Unknown]
  - Chronic hepatitis B [Unknown]
  - Alcohol abuse [Unknown]
  - Enterococcal infection [Unknown]
  - Varices oesophageal [Unknown]
  - Small intestinal obstruction [Unknown]
  - Peritonitis bacterial [Unknown]
  - Drug abuse [Unknown]
